FAERS Safety Report 8785403 (Version 1)
Quarter: 2012Q4

REPORT INFORMATION
  Report Type: Spontaneous
  Country: US (occurrence: None)
  Receive Date: 20120904
  Receipt Date: 20120904
  Transmission Date: 20130627
  Serious: Yes (Other)
  Sender: FDA-Public Use
  Company Number: ADE12-083

PATIENT
  Age: 84 Year
  Sex: Male
  Weight: 83.4 kg

DRUGS (6)
  1. HEPARIN [Suspect]
     Indication: OPEN HEART SURGERY
     Dosage: Variedad, as needed,
     Route: 042
     Dates: start: 20120821, end: 20120821
  2. ACETAMINOPHEN [Concomitant]
  3. ALBUMIN 250 [Concomitant]
  4. BISACODYL 10 MG [Concomitant]
  5. PLAVIX 75 MG [Concomitant]
  6. ENTERIC COATED ASPIRIN [Concomitant]

REACTIONS (1)
  - Drug ineffective [None]
